FAERS Safety Report 4468201-4 (Version None)
Quarter: 2004Q4

REPORT INFORMATION
  Report Type: 
  Country: None (occurrence: None)
  Receive Date: 20041007
  Receipt Date: 20040726
  Transmission Date: 20050328
  Serious: Yes (Death, Hospitalization)
  Sender: FDA-Public Use
  Company Number: US-MERCK-0407USA02349

PATIENT
  Age: 86 Year
  Sex: Female

DRUGS (5)
  1. FOSAMAX [Suspect]
     Route: 048
     Dates: end: 20040701
  2. ATENOLOL [Suspect]
     Route: 065
     Dates: end: 20040701
  3. LASIX [Suspect]
     Route: 065
     Dates: end: 20040701
  4. LISINOPRIL [Suspect]
     Route: 065
     Dates: end: 20040501
  5. MEVACOR [Suspect]
     Route: 048
     Dates: start: 19960101, end: 20040726

REACTIONS (14)
  - ACUTE MYOCARDIAL INFARCTION [None]
  - ANTINUCLEAR ANTIBODY POSITIVE [None]
  - ASPARTATE AMINOTRANSFERASE INCREASED [None]
  - BLOOD CREATININE INCREASED [None]
  - BLOOD PRESSURE FLUCTUATION [None]
  - BLOOD UREA INCREASED [None]
  - BUNDLE BRANCH BLOCK RIGHT [None]
  - CARDIAC FAILURE CONGESTIVE [None]
  - CORONARY ARTERY STENOSIS [None]
  - EOSINOPHILIC MYOCARDITIS [None]
  - GASTROENTERITIS [None]
  - HYPEREOSINOPHILIC SYNDROME [None]
  - LOEFFLER'S SYNDROME [None]
  - VENTRICULAR WALL THICKENING [None]
